FAERS Safety Report 21811712 (Version 1)
Quarter: 2023Q1

REPORT INFORMATION
  Report Type: Spontaneous
  Country: US (occurrence: US)
  Receive Date: 20230103
  Receipt Date: 20230103
  Transmission Date: 20230417
  Serious: No
  Sender: FDA-Public Use
  Company Number: USA--2022-US-000964

PATIENT
  Age: 80 Year
  Sex: Male

DRUGS (3)
  1. LATANOPROST [Suspect]
     Active Substance: LATANOPROST
     Dosage: 1 GGT OU PER NIGHT
     Dates: start: 20221201, end: 20221215
  2. LOPRESSOR [Concomitant]
     Active Substance: METOPROLOL TARTRATE
  3. Dorzolamide OS [Concomitant]

REACTIONS (1)
  - Eye paraesthesia [Recovered/Resolved]

NARRATIVE: CASE EVENT DATE: 20221201
